FAERS Safety Report 10147515 (Version 3)
Quarter: 2014Q3

REPORT INFORMATION
  Report Type: Spontaneous
  Country: US (occurrence: US)
  Receive Date: 20140501
  Receipt Date: 20140724
  Transmission Date: 20150326
  Serious: Yes (Death)
  Sender: FDA-Public Use
  Company Number: US-LUNDBECK-DKLU1099569

PATIENT
  Age: 5 Year
  Sex: Female

DRUGS (4)
  1. KEPPRA [Concomitant]
     Active Substance: LEVETIRACETAM
     Indication: PRODUCT USED FOR UNKNOWN INDICATION
  2. SABRIL [Suspect]
     Active Substance: VIGABATRIN
     Indication: INFANTILE SPASMS
     Route: 048
     Dates: start: 20100618
  3. SABRIL [Suspect]
     Active Substance: VIGABATRIN
     Indication: CEREBRAL INFARCTION
  4. SABRIL [Suspect]
     Active Substance: VIGABATRIN
     Indication: MIGRAINE WITH AURA
     Route: 048
     Dates: start: 20131122, end: 20140425

REACTIONS (3)
  - Schizencephaly [Fatal]
  - Cerebral dysgenesis [Fatal]
  - Convulsion [Fatal]

NARRATIVE: CASE EVENT DATE: 20140425
